FAERS Safety Report 23838792 (Version 4)
Quarter: 2025Q3

REPORT INFORMATION
  Report Type: Spontaneous
  Country: US (occurrence: US)
  Receive Date: 20240509
  Receipt Date: 20250822
  Transmission Date: 20251021
  Serious: Yes (Hospitalization, Other)
  Sender: Vantive US Healthcare
  Company Number: US-VANTIVE-2024VAN016733

PATIENT
  Sex: Male

DRUGS (1)
  1. DIANEAL FOR PERITONEAL DIALYSIS [Suspect]
     Active Substance: ANHYDROUS DEXTROSE\CALCIUM CHLORIDE\MAGNESIUM CHLORIDE\SODIUM CHLORIDE\SODIUM LACTATE
     Route: 033

REACTIONS (10)
  - Infection [Unknown]
  - Product contamination [Unknown]
  - Recalled product administered [Unknown]
  - Clostridium difficile infection [Unknown]
  - Sepsis [Unknown]
  - Peritonitis [Recovered/Resolved]
  - Peritonitis [Unknown]
  - Decubitus ulcer [Unknown]
  - Poor quality product administered [Unknown]
  - Device related infection [Unknown]
